FAERS Safety Report 25853322 (Version 2)
Quarter: 2025Q3

REPORT INFORMATION
  Report Type: Spontaneous
  Country: US (occurrence: US)
  Receive Date: 20250926
  Receipt Date: 20250930
  Transmission Date: 20251020
  Serious: Yes (Hospitalization, Other)
  Sender: Kenvue
  Company Number: US-KENVUE-20250910233

PATIENT
  Sex: Female

DRUGS (7)
  1. NEUTROGENA SKINCLEARING OIL FREE MAKEUP - TAN 120 [Suspect]
     Active Substance: SALICYLIC ACID
     Indication: Product used for unknown indication
     Route: 061
  2. NEUTROGENA HEALTHY SKIN COMPACT FOUNDATION SPF55 UNSPECIFIED [Concomitant]
     Indication: Product used for unknown indication
     Route: 061
  3. NEUTROGENA MAKE UP REMOVER ULTRA SOFT CLEANSING TOWELETTES 25CT [Concomitant]
     Indication: Removal of inert matter from skin or subcutaneous tissue
     Route: 061
  4. NEUTROGENA MINERAL SHEERS COMPACT POWDER FOUNDATION SOFT BEIGE 50 [Concomitant]
     Indication: Product used for unknown indication
     Route: 061
  5. NEUTROGENA HEALTHY SKIN LIQUID MAKEUP SPF 20 - SOFT BEIGE 50 [Concomitant]
     Active Substance: TITANIUM DIOXIDE
     Indication: Product used for unknown indication
     Route: 061
  6. NTG HEALTHY SKIN BLENDS TRANSLUCENT OIL CONTROL POWDER [Concomitant]
     Indication: Product used for unknown indication
     Route: 061
  7. NEUTROGENA HEALTHY SKIN PRESSED POWDER LIGHT-MEDIUM 30 .34OZ [Concomitant]
     Indication: Product used for unknown indication
     Route: 061

REACTIONS (2)
  - Neoplasm malignant [Not Recovered/Not Resolved]
  - Product lot number issue [Unknown]

NARRATIVE: CASE EVENT DATE: 20100101
